FAERS Safety Report 8590266-9 (Version None)
Quarter: 2012Q3

REPORT INFORMATION
  Report Type: 
  Country: None (occurrence: None)
  Receive Date: 20120813
  Receipt Date: 20120808
  Transmission Date: 20120928
  Serious: Yes (Death)
  Sender: FDA-Public Use
  Company Number: US-GLAXOSMITHKLINE-A0980284A

PATIENT
  Age: 75 Year
  Sex: Female
  Weight: 72.7 kg

DRUGS (1)
  1. TYKERB [Suspect]
     Indication: BREAST CANCER
     Dosage: 1250MG PER DAY
     Route: 048
     Dates: start: 20100401, end: 20120528

REACTIONS (2)
  - DISEASE PROGRESSION [None]
  - BREAST CANCER METASTATIC [None]
